FAERS Safety Report 9169217 (Version 2)
Quarter: 2013Q3

REPORT INFORMATION
  Report Type: Report from Study
  Country: FR (occurrence: FR)
  Receive Date: 20130318
  Receipt Date: 20130911
  Transmission Date: 20140515
  Serious: Yes (Death)
  Sender: FDA-Public Use
  Company Number: FR-ROCHE-1203192

PATIENT
  Sex: Male
  Weight: 82 kg

DRUGS (2)
  1. PEG-INTERFERON ALFA 2A [Suspect]
     Indication: HEPATITIS C
     Route: 058
     Dates: start: 20110407, end: 20120315
  2. RIBAVIRIN [Suspect]
     Indication: HEPATITIS C
     Dosage: QD
     Route: 048
     Dates: start: 20110407, end: 20120321

REACTIONS (1)
  - Disease progression [Fatal]
